FAERS Safety Report 21521438 (Version 2)
Quarter: 2022Q4

REPORT INFORMATION
  Report Type: Report from Study
  Country: US (occurrence: US)
  Receive Date: 20221028
  Receipt Date: 20221207
  Transmission Date: 20230113
  Serious: No
  Sender: FDA-Public Use
  Company Number: US-ABBVIE-4148168

PATIENT
  Sex: Female

DRUGS (1)
  1. IMBRUVICA [Suspect]
     Active Substance: IBRUTINIB
     Indication: B-cell small lymphocytic lymphoma
     Route: 048
     Dates: start: 202208

REACTIONS (5)
  - Fatigue [Unknown]
  - White blood cell count increased [Unknown]
  - Epistaxis [Unknown]
  - Contusion [Unknown]
  - Extrasystoles [Unknown]
